FAERS Safety Report 7353725-2 (Version None)
Quarter: 2011Q1

REPORT INFORMATION
  Report Type: 
  Country: None (occurrence: None)
  Receive Date: 20110310
  Receipt Date: 20110310
  Transmission Date: 20110831
  Serious: Yes (Disabling)
  Sender: FDA-Public Use
  Company Number: None

PATIENT
  Sex: Female
  Weight: 63.5036 kg

DRUGS (3)
  1. LITHIUM FROM MEDCO [Suspect]
     Dosage: TRIZADONE 1 TAB AT BEDTIME
  2. NAPRELAN [Suspect]
     Dosage: NAPRELAN 50 MG 2 TABLETS DAILY
  3. DIOVAN [Suspect]
     Indication: BLOOD PRESSURE INCREASED
     Dosage: DIOVAN / 60-25 MG 1 TAB  1 TAB AT BEDTIME DAILY 50 MG

REACTIONS (10)
  - FEELING ABNORMAL [None]
  - DYSKINESIA [None]
  - MENTAL DISORDER [None]
  - TREMOR [None]
  - RENAL DISORDER [None]
  - DRUG INTERACTION [None]
  - GAIT DISTURBANCE [None]
  - BALANCE DISORDER [None]
  - KNEE OPERATION [None]
  - WHEELCHAIR USER [None]
